FAERS Safety Report 7842295 (Version 2)
Quarter: 2013Q4

REPORT INFORMATION
  Report Type: Spontaneous
  Country: NL (occurrence: NL)
  Receive Date: 20110304
  Receipt Date: 20131003
  Transmission Date: 20140711
  Serious: Yes (Hospitalization, Other)
  Sender: FDA-Public Use
  Company Number: NL-ELI_LILLY_AND_COMPANY-NL201102005964

PATIENT
  Age: 28 Month
  Sex: Female

DRUGS (1)
  1. OLANZAPINE [Suspect]
     Dosage: 30 MG, DAILY (1/D)
     Route: 065

REACTIONS (10)
  - Accidental overdose [Recovered/Resolved]
  - Toxicity to various agents [Recovered/Resolved]
  - Loss of consciousness [Recovered/Resolved]
  - Tachycardia [Recovered/Resolved]
  - Hypertension [Recovered/Resolved]
  - Hypotension [Recovered/Resolved]
  - Off label use [Recovered/Resolved]
  - Agitation [Recovered/Resolved]
  - Dysarthria [Recovered/Resolved]
  - Dyskinesia [Recovered/Resolved]
